FAERS Safety Report 9129670 (Version 1)
Quarter: 2013Q1

REPORT INFORMATION
  Report Type: Spontaneous
  Country: BR (occurrence: BR)
  Receive Date: 20130125
  Receipt Date: 20130125
  Transmission Date: 20140127
  Serious: Yes (Other)
  Sender: FDA-Public Use
  Company Number: BR-BRISTOL-MYERS SQUIBB COMPANY-16847048

PATIENT
  Age: 4 Decade
  Sex: Male

DRUGS (1)
  1. SPRYCEL [Suspect]
     Indication: CHRONIC MYELOID LEUKAEMIA
     Dosage: STARTED 6 MONTHS AGO, DOSE REDUCED TO 50MG/DAY

REACTIONS (2)
  - Bone marrow failure [Not Recovered/Not Resolved]
  - Gene mutation [Unknown]
